FAERS Safety Report 7779701-3 (Version None)
Quarter: 2011Q3

REPORT INFORMATION
  Report Type: 
  Country: None (occurrence: None)
  Receive Date: 20110927
  Receipt Date: 20110922
  Transmission Date: 20111222
  Serious: Yes (Disabling)
  Sender: FDA-Public Use
  Company Number: DK-PFIZER INC-2011226373

PATIENT
  Age: 36 Year
  Sex: Male
  Weight: 80 kg

DRUGS (4)
  1. SEROQUEL [Suspect]
     Indication: DEPRESSED MOOD
  2. LYRICA [Suspect]
     Indication: ANXIETY
     Dosage: 150 MG DAILY
     Route: 048
     Dates: start: 20091210, end: 20110826
  3. VALPROIC ACID [Suspect]
     Indication: BIPOLAR DISORDER
     Dosage: 2000 MG DAILY
     Route: 048
     Dates: start: 20090320
  4. SEROQUEL [Suspect]
     Indication: ANXIETY
     Dosage: 800 MG, 1X/DAY
     Route: 048
     Dates: start: 20090130

REACTIONS (1)
  - ATONIC URINARY BLADDER [None]
